FAERS Safety Report 15716689 (Version 5)
Quarter: 2019Q3

REPORT INFORMATION
  Report Type: Report from Study
  Country: US (occurrence: US)
  Receive Date: 20181213
  Receipt Date: 20190906
  Transmission Date: 20191004
  Serious: Yes (Death, Hospitalization, Other)
  Sender: FDA-Public Use
  Company Number: US-GILEAD-2018-0374708

PATIENT
  Age: 49 Year
  Sex: Female

DRUGS (9)
  1. ALBUTEROL [SALBUTAMOL SULFATE] [Concomitant]
     Active Substance: ALBUTEROL SULFATE
  2. ZOTRAN [Concomitant]
     Active Substance: ALPRAZOLAM
  3. POTASSIUM CHLORIDE. [Concomitant]
     Active Substance: POTASSIUM CHLORIDE
  4. VELETRI [Concomitant]
     Active Substance: EPOPROSTENOL
  5. VALIUM [Concomitant]
     Active Substance: DIAZEPAM
  6. REVATIO [Concomitant]
     Active Substance: SILDENAFIL CITRATE
  7. BUMETANIDE. [Concomitant]
     Active Substance: BUMETANIDE
  8. AMBRISENTAN [Suspect]
     Active Substance: AMBRISENTAN
     Indication: PULMONARY ARTERIAL HYPERTENSION
     Dosage: 10 MG, QD
     Route: 048
     Dates: start: 20131104
  9. SILDENAFIL CITRATE. [Concomitant]
     Active Substance: SILDENAFIL CITRATE

REACTIONS (8)
  - Death [Fatal]
  - Nasopharyngitis [Unknown]
  - Lower respiratory tract infection [Not Recovered/Not Resolved]
  - Heart transplant [Unknown]
  - Right ventricular failure [Unknown]
  - Pyrexia [Unknown]
  - Lung transplant [Unknown]
  - Nasopharyngitis [Not Recovered/Not Resolved]

NARRATIVE: CASE EVENT DATE: 20190103
